FAERS Safety Report 4297813-6 (Version None)
Quarter: 2004Q1

REPORT INFORMATION
  Report Type: 
  Country: None (occurrence: None)
  Receive Date: 20040126
  Receipt Date: 20031029
  Transmission Date: 20041129
  Serious: No
  Sender: FDA-Public Use
  Company Number: USA031051123

PATIENT
  Age: 8 Year
  Sex: Female
  Weight: 28 kg

DRUGS (5)
  1. STRATTERA [Suspect]
     Indication: ATTENTION DEFICIT/HYPERACTIVITY DISORDER
     Dosage: 40 MG
     Dates: start: 20030801, end: 20031023
  2. ALBUTEROL [Concomitant]
  3. SINGULAIR [Concomitant]
  4. HISTEX [Concomitant]
  5. ADDERALL 10 [Concomitant]

REACTIONS (6)
  - DISTURBANCE IN ATTENTION [None]
  - IMPULSIVE BEHAVIOUR [None]
  - IRRITABILITY [None]
  - PARAESTHESIA [None]
  - PHARYNGITIS STREPTOCOCCAL [None]
  - PRURITUS [None]
